FAERS Safety Report 6430043-8 (Version None)
Quarter: 2009Q4

REPORT INFORMATION
  Report Type: 
  Country: None (occurrence: None)
  Receive Date: 20091104
  Receipt Date: 20091104
  Transmission Date: 20100525
  Serious: No
  Sender: FDA-Public Use
  Company Number: None

PATIENT
  Age: 72 Year
  Sex: Female
  Weight: 63.5036 kg

DRUGS (1)
  1. MORRHUATE SODIUM INJECTION, USP AMERICAN REGENT, INC [Suspect]
     Indication: VARICOSE VEIN
     Dates: start: 20080910, end: 20080910

REACTIONS (10)
  - ANAPHYLACTIC REACTION [None]
  - ASTHENIA [None]
  - CHEST PAIN [None]
  - EXERCISE TOLERANCE DECREASED [None]
  - INJECTION SITE EXTRAVASATION [None]
  - INJECTION SITE SCAR [None]
  - MIXED CONNECTIVE TISSUE DISEASE [None]
  - PAIN [None]
  - PAIN IN EXTREMITY [None]
  - SKIN ATROPHY [None]
